FAERS Safety Report 18466389 (Version 1)
Quarter: 2020Q4

REPORT INFORMATION
  Report Type: Other
  Country: GR (occurrence: GR)
  Receive Date: 20201104
  Receipt Date: 20201104
  Transmission Date: 20210114
  Serious: Yes (Death, Other)
  Sender: FDA-Public Use
  Company Number: GR-ROCHE-2704475

PATIENT
  Age: 50 Year
  Sex: Female

DRUGS (1)
  1. RITUXIMAB. [Suspect]
     Active Substance: RITUXIMAB
     Indication: DEMYELINATION
     Route: 065

REACTIONS (5)
  - Pneumonia [Fatal]
  - Intentional product use issue [Unknown]
  - Off label use [Unknown]
  - Therapy non-responder [Unknown]
  - Hemiparesis [Unknown]
